FAERS Safety Report 16746879 (Version 2)
Quarter: 2020Q1

REPORT INFORMATION
  Report Type: Report from Study
  Country: US (occurrence: US)
  Receive Date: 20190827
  Receipt Date: 20200317
  Transmission Date: 20200409
  Serious: Yes (Other)
  Sender: FDA-Public Use
  Company Number: US-TEVA-2019-US-1098663

PATIENT
  Age: 4 Year

DRUGS (12)
  1. LIPOSOMAL AMPHOTERICIN [Concomitant]
     Active Substance: AMPHOTERICIN B
     Indication: MUCORMYCOSIS
     Route: 065
  2. DEXAMETHASONE. [Suspect]
     Active Substance: DEXAMETHASONE
     Indication: ACUTE LYMPHOCYTIC LEUKAEMIA
     Dosage: INDUCTION CHEMOTHERAPY
     Route: 065
  3. VINCRISTINE [Interacting]
     Active Substance: VINCRISTINE
     Indication: ACUTE LYMPHOCYTIC LEUKAEMIA
     Dosage: INDUCTION CHEMOTHERAPY FOLLOWED BY BRIDGING CHEMOTHERAPY
     Route: 065
  4. PEGASPARGASE [Suspect]
     Active Substance: PEGASPARGASE
     Indication: ACUTE LYMPHOCYTIC LEUKAEMIA
     Dosage: INDUCTION CHEMOTHERAPY
     Route: 065
  5. POSACONAZOLE [Interacting]
     Active Substance: POSACONAZOLE
     Indication: MUCORMYCOSIS
     Route: 065
  6. MICAFUNGIN. [Concomitant]
     Active Substance: MICAFUNGIN SODIUM
     Indication: MUCORMYCOSIS
     Dosage: SEVEN MONTHS
     Route: 065
  7. METHOTREXATE. [Suspect]
     Active Substance: METHOTREXATE
     Indication: ACUTE LYMPHOCYTIC LEUKAEMIA
     Dosage: INDUCTION CHEMOTHERAPY FOLLOWED BY BRIDGING CHEMOTHERAPY FOR 3 MONTHS FOLLOWED BY MAINTENANCE 5 GM/M
     Route: 065
  8. CYTARABINE. [Suspect]
     Active Substance: CYTARABINE
     Indication: ACUTE LYMPHOCYTIC LEUKAEMIA
     Dosage: INDUCTION CHEMOTHERAPY
     Route: 065
  9. METHOTREXATE. [Suspect]
     Active Substance: METHOTREXATE
     Dosage: MAINTENANCE THERAPY REDUCED TO 2 GM/M2
     Route: 065
  10. DAUNORUBICIN [Suspect]
     Active Substance: DAUNORUBICIN
     Indication: ACUTE LYMPHOCYTIC LEUKAEMIA
     Dosage: INDUCTION CHEMOTHERAPY
     Route: 065
  11. 6-MERCAPTOPURINE [Suspect]
     Active Substance: MERCAPTOPURINE
     Indication: ACUTE LYMPHOCYTIC LEUKAEMIA
     Dosage: BRIDGING CHEMOTHERAPY
     Route: 065
  12. METHOTREXATE. [Suspect]
     Active Substance: METHOTREXATE
     Dosage: MAINTENANCE THERAPY OF 5 GM/M2
     Route: 065

REACTIONS (4)
  - Pancreatitis [Unknown]
  - Mucormycosis [Recovering/Resolving]
  - Neuralgia [Unknown]
  - Drug interaction [Unknown]
